FAERS Safety Report 9521415 (Version 3)
Quarter: 2013Q4

REPORT INFORMATION
  Report Type: Spontaneous
  Country: US (occurrence: None)
  Receive Date: 20130911
  Receipt Date: 20131011
  Transmission Date: 20140711
  Serious: Yes (Hospitalization)
  Sender: FDA-Public Use
  Company Number: AUR-APL-2013-07449

PATIENT
  Age: 37 Year
  Sex: Female

DRUGS (2)
  1. RISPERIDONE [Suspect]
     Indication: SCHIZOPHRENIA, PARANOID TYPE
     Dosage: (1MG)
  2. ILOPERIDONE [Suspect]
     Indication: SCHIZOPHRENIA, PARANOID TYPE
     Dosage: 1MG, AT BEDTIME, ORAL
     Route: 048

REACTIONS (3)
  - Neuroleptic malignant syndrome [None]
  - Amenorrhoea [None]
  - Pulmonary embolism [None]
